FAERS Safety Report 4475534-4 (Version None)
Quarter: 2004Q4

REPORT INFORMATION
  Report Type: 
  Country: None (occurrence: None)
  Receive Date: 20041014
  Receipt Date: 20041014
  Transmission Date: 20050328
  Serious: Yes (Life-Threatening)
  Sender: FDA-Public Use
  Company Number: None

PATIENT
  Sex: Female
  Weight: 119.5 kg

DRUGS (1)
  1. ORTHO TRI-CYCLEN [Suspect]
     Indication: MENOMETRORRHAGIA
     Dosage: 1 TAB QD ORAL
     Route: 048
     Dates: start: 20040819, end: 20041002

REACTIONS (1)
  - PULMONARY EMBOLISM [None]
